FAERS Safety Report 9453954 (Version 1)
Quarter: 2013Q3

REPORT INFORMATION
  Report Type: Spontaneous
  Country: IT (occurrence: IT)
  Receive Date: 20130812
  Receipt Date: 20130812
  Transmission Date: 20140515
  Serious: Yes (Hospitalization)
  Sender: FDA-Public Use
  Company Number: IT-TEVA-423461ISR

PATIENT
  Age: 33 Year
  Sex: Female

DRUGS (1)
  1. AMOXICILLIN W/CLAVULANIC ACID [Suspect]
     Indication: OTITIS MEDIA ACUTE
     Dosage: 1 GRAM DAILY;
     Route: 048
     Dates: start: 20130627, end: 20130627

REACTIONS (4)
  - Asthenia [Recovering/Resolving]
  - Dizziness [Recovering/Resolving]
  - Nausea [Recovering/Resolving]
  - Balance disorder [Recovering/Resolving]
